FAERS Safety Report 6666212-1 (Version None)
Quarter: 2010Q2

REPORT INFORMATION
  Report Type: 
  Country: None (occurrence: None)
  Receive Date: 20100402
  Receipt Date: 20091012
  Transmission Date: 20101027
  Serious: Yes (Other)
  Sender: FDA-Public Use
  Company Number: BR-AMGEN-QUU399741

PATIENT
  Sex: Male

DRUGS (1)
  1. GRANULOKINE [Suspect]
     Indication: NEUTROPENIA
     Route: 058
     Dates: start: 20020101, end: 20090927

REACTIONS (2)
  - ARTHRALGIA [None]
  - NEUTROPHIL COUNT DECREASED [None]
